FAERS Safety Report 4580885-9 (Version None)
Quarter: 2005Q1

REPORT INFORMATION
  Report Type: 
  Country: None (occurrence: None)
  Receive Date: 20050214
  Receipt Date: 20040622
  Transmission Date: 20050727
  Serious: Yes (Hospitalization)
  Sender: FDA-Public Use
  Company Number: US-GLAXOSMITHKLINE-A0515595A

PATIENT
  Age: 44 Year
  Sex: Female

DRUGS (10)
  1. LAMICTAL [Suspect]
     Indication: RADICULITIS CERVICAL
     Dosage: 12.5MG PER DAY
     Route: 048
     Dates: start: 20040612, end: 20040615
  2. LAMICTAL [Suspect]
     Dosage: 6.25MG PER DAY
     Dates: start: 20040605, end: 20040611
  3. TRAZODONE [Concomitant]
  4. BACLOFEN [Concomitant]
  5. NEXIUM [Concomitant]
  6. PREMARIN [Concomitant]
  7. BEXTRA [Concomitant]
  8. WELLBUTRIN XL [Concomitant]
  9. KLONOPIN [Concomitant]
  10. ZOMIG [Concomitant]

REACTIONS (10)
  - BLISTER [None]
  - BURNING SENSATION [None]
  - HYPERSENSITIVITY [None]
  - PAIN [None]
  - PRURITUS [None]
  - RASH [None]
  - RASH PRURITIC [None]
  - RASH VESICULAR [None]
  - STEVENS-JOHNSON SYNDROME [None]
  - URTICARIA [None]
